FAERS Safety Report 9157902 (Version 2)
Quarter: 2013Q1

REPORT INFORMATION
  Report Type: Spontaneous
  Country: US (occurrence: None)
  Receive Date: 20130204
  Receipt Date: 20130314
  Transmission Date: 20140127
  Serious: Yes (Hospitalization)
  Sender: FDA-Public Use
  Company Number: MPS1-1000915

PATIENT
  Age: 11 Month
  Sex: Male
  Weight: 5.8 kg

DRUGS (45)
  1. ALDURAZYME [Suspect]
     Indication: MUCOPOLYSACCHARIDOSIS I
     Dosage: 0.58 MG/KG, QW, INTRAVENOUS
     Route: 042
     Dates: start: 20120515
  2. ACETAZOLAMIDE (ACETAZOLAMIDE) [Concomitant]
  3. ANTICOAGULANT CITRATE DEXTROSE (ANTICOAGULANT CITRATE DEXTROSE) [Concomitant]
  4. AZITHROMYCIN (AZITHROMYCIN) [Concomitant]
  5. CHLORHEXIDINE (CHLORHEXZIDINE) [Concomitant]
  6. CIDOFOVIR (CIDOFOVIR) [Concomitant]
  7. CLONIDINE (CLONIDINE) [Concomitant]
  8. . [Concomitant]
  9. CLOTRIMAZOLE (CLOTRIMAZOLE) [Concomitant]
  10. EPOETIN ALFA [Concomitant]
  11. IMMUNOGLOBULIN (IMMUNOGLOBULIN) [Concomitant]
  12. ISRADIPINKE (ISRADIPINE) [Concomitant]
  13. LACRI-LUBE (MINERAL OIL LIGHT, PETROLATUM, WOOL FAT) [Concomitant]
  14. ALBUMIN HUMAN (ALBUMIN HUMAN) [Concomitant]
  15. LEUCOVORIN (FOLINIC ACID) [Concomitant]
  16. LORAZEPAM (LORAZEPAM) [Concomitant]
  17. MEROOPENEM (MEROPENEM) [Concomitant]
  18. METHADONE (METHADONE) [Concomitant]
  19. METHYLPREDNISOLONE (METHYLPREDNISOLONE) [Concomitant]
  20. MICAFUNGIN (MICAFUNGIN) [Concomitant]
  21. PANTOPRAZOLE (PANTOPRAZOLE) [Concomitant]
  22. PENTAMIDINE (PENTAMIDINE) [Concomitant]
  23. PROPRANOLOL (PROPRANOLOL) [Concomitant]
  24. SILDENAFIL (SILDENAFIL) [Concomitant]
  25. URSODIOL (URSODEOXYCHOLIC ACID) [Concomitant]
  26. VORICONAZOLE (VORICONAZOLE) [Concomitant]
  27. ACETAMINOPHEN (PARACETAMOL) [Concomitant]
  28. BICITRACIN (BACITRACIN) [Concomitant]
  29. CALMOSEPTINE (CALAMINE) [Concomitant]
  30. DIPHENHYDRAMINE (DIPHENHYDRAMINE) [Concomitant]
  31. HEPARIN (HEPARIN) [Concomitant]
  32. HYDRALAZINE (HYDRALAZINE) [Concomitant]
  33. HYDROMORPHONE (HYDROMORPHONE) [Concomitant]
  34. LEVALBUTEROL HYDROCHLORIDE (LEVOSALBUTAMOL HYDROCHLORIDE) [Concomitant]
  35. LIDOCAINE (LIDOCAINE) [Concomitant]
  36. NALBUPHINE (NALBUPHINE) [Concomitant]
  37. NALOXONE (NALOXONE) [Concomitant]
  38. NORMAL SALINE (SODIUM CHLORIDE) [Concomitant]
  39. NYSTATIN (NYSTATIN) [Concomitant]
  40. ONDANSETRON (ONDANSETRON) [Concomitant]
  41. POLYETHYLENE GLYCOL (MACROGOL) [Concomitant]
  42. OCEAN NASAL (SODIUM CHLORIDE) [Concomitant]
  43. SODIUM BICARBONATE (SODIUM BICARBONATE) [Concomitant]
  44. HEP-RINSE (HEPARIN SODIUM) [Concomitant]
  45. MILRINONE (MILRINONE) [Concomitant]

REACTIONS (7)
  - Urinary glycosaminoglycans increased [None]
  - Bone marrow transplant rejection [None]
  - Adenovirus infection [None]
  - Multi-organ failure [None]
  - Renal failure [None]
  - Respiratory failure [None]
  - Post procedural complication [None]
